FAERS Safety Report 21674303 (Version 1)
Quarter: 2022Q4

REPORT INFORMATION
  Report Type: Spontaneous
  Country: IT (occurrence: IT)
  Receive Date: 20221202
  Receipt Date: 20221202
  Transmission Date: 20230113
  Serious: Yes (Other)
  Sender: FDA-Public Use
  Company Number: IT-MYLANLABS-2022M1134675

PATIENT
  Age: 1 Month
  Sex: Male

DRUGS (6)
  1. PREDNISONE [Suspect]
     Active Substance: PREDNISONE
     Indication: Pemphigoid
     Dosage: 25 MILLIGRAM, QD
     Route: 065
  2. PREDNISONE [Suspect]
     Active Substance: PREDNISONE
     Dosage: UNK, CONTINUED WITH TAPERED DOSE
     Route: 065
  3. BETAMETHASONE [Suspect]
     Active Substance: BETAMETHASONE
     Indication: Pemphigoid
     Dosage: 0.2 MILLIGRAM/KILOGRAM, QD
     Route: 048
  4. BETAMETHASONE [Suspect]
     Active Substance: BETAMETHASONE
     Dosage: UNK, PROGRESSIVELY TAPERED
     Route: 048
  5. DAPSONE [Suspect]
     Active Substance: DAPSONE
     Indication: Pemphigoid
     Dosage: 50 MILLIGRAM, QD
     Route: 065
  6. DAPSONE [Suspect]
     Active Substance: DAPSONE
     Dosage: 25 MILLIGRAM, QD
     Route: 065

REACTIONS (4)
  - Drug ineffective [Unknown]
  - Condition aggravated [Unknown]
  - Weight increased [Unknown]
  - Insomnia [Unknown]
